FAERS Safety Report 20664703 (Version 1)
Quarter: 2022Q2

REPORT INFORMATION
  Report Type: Spontaneous
  Country: US (occurrence: US)
  Receive Date: 20220401
  Receipt Date: 20220401
  Transmission Date: 20220720
  Serious: No
  Sender: FDA-Public Use
  Company Number: US-PFIZER INC-202200505110

PATIENT
  Age: 76 Year
  Sex: Male
  Weight: 88.45 kg

DRUGS (9)
  1. PAXLOVID [Suspect]
     Active Substance: NIRMATRELVIR\RITONAVIR
     Indication: Coronavirus infection
     Dosage: 3 TABLETS TWICE - 2 OF ONE AND 1 OF THE OTHER IN THE BLISTER PACK
     Route: 048
     Dates: start: 20220330
  2. PAXLOVID [Suspect]
     Active Substance: NIRMATRELVIR\RITONAVIR
     Indication: COVID-19 treatment
  3. ELIQUIS [Concomitant]
     Active Substance: APIXABAN
     Indication: Transient ischaemic attack
     Dosage: 5 MG, 2X/DAY
     Dates: start: 202010
  4. LIVALO [Concomitant]
     Active Substance: PITAVASTATIN CALCIUM
     Indication: Transient ischaemic attack
     Dosage: 2 MG, 1X/DAY
  5. CLARITIN [Concomitant]
     Active Substance: LORATADINE
     Indication: Seasonal allergy
     Dosage: 1 DF, DAILY
     Route: 048
     Dates: start: 20220328
  6. NISOLDIPINE [Concomitant]
     Active Substance: NISOLDIPINE
     Indication: Hypertension
     Dosage: 34 MG, 1X/DAY
  7. LOSARTAN POTASSIUM [Concomitant]
     Active Substance: LOSARTAN POTASSIUM
     Indication: Hypertension
     Dosage: 25 MG, 1X/DAY
  8. KLONOPIN [Concomitant]
     Active Substance: CLONAZEPAM
     Indication: Anxiety
     Dosage: 0.5 MG, 1X/DAY (0.5 MG (0.5MG NIGHTLY)
  9. KLONOPIN [Concomitant]
     Active Substance: CLONAZEPAM
     Indication: Sleep disorder

REACTIONS (2)
  - Heart rate increased [Not Recovered/Not Resolved]
  - Feeling abnormal [Unknown]

NARRATIVE: CASE EVENT DATE: 20220330
